FAERS Safety Report 25130985 (Version 2)
Quarter: 2025Q2

REPORT INFORMATION
  Report Type: Report from Study
  Country: IT (occurrence: IT)
  Receive Date: 20250327
  Receipt Date: 20250417
  Transmission Date: 20250717
  Serious: Yes (Other)
  Sender: BRISTOL MYERS SQUIBB
  Company Number: IT-BRISTOL-MYERS SQUIBB COMPANY-2025-039758

PATIENT
  Age: 68 Year
  Sex: Female

DRUGS (6)
  1. MAVACAMTEN [Suspect]
     Active Substance: MAVACAMTEN
     Indication: Hypertrophic cardiomyopathy
     Dates: start: 20250212
  2. XARELTO [Concomitant]
     Active Substance: RIVAROXABAN
     Indication: Product used for unknown indication
  3. LEVOTHYROXINE SODIUM [Concomitant]
     Active Substance: LEVOTHYROXINE SODIUM
     Indication: Product used for unknown indication
     Dosage: MON/TUE/WED
  4. LEVOTHYROXINE SODIUM [Concomitant]
     Active Substance: LEVOTHYROXINE SODIUM
     Dosage: THU/FRI/SAT/SUN
  5. HIMAVAT [Concomitant]
     Indication: Product used for unknown indication
     Dosage: 10/20 MG
  6. METHOTREXATE [Concomitant]
     Active Substance: METHOTREXATE
     Indication: Product used for unknown indication

REACTIONS (2)
  - Fall [Recovering/Resolving]
  - Open fracture [Recovering/Resolving]

NARRATIVE: CASE EVENT DATE: 20250225
